FAERS Safety Report 19180821 (Version 2)
Quarter: 2022Q1

REPORT INFORMATION
  Report Type: Spontaneous
  Country: FR (occurrence: FR)
  Receive Date: 20210426
  Receipt Date: 20220224
  Transmission Date: 20220424
  Serious: Yes (Other)
  Sender: FDA-Public Use
  Company Number: None

PATIENT
  Age: 56 Year
  Sex: Female
  Weight: 70 kg

DRUGS (6)
  1. VORICONAZOLE [Suspect]
     Active Substance: VORICONAZOLE
     Indication: Arthritis infective
     Dosage: 500 MG, 1X/DAY
     Route: 041
     Dates: start: 20201127, end: 20201202
  2. DAPTOMYCIN [Suspect]
     Active Substance: DAPTOMYCIN
     Indication: Arthritis infective
     Dosage: 500 MG, 1X/DAY
     Route: 041
     Dates: start: 20201029, end: 20201218
  3. VANCOMYCIN [Suspect]
     Active Substance: VANCOMYCIN
     Indication: Arthritis infective
     Dosage: 2 G, 1X/DAY
     Route: 041
     Dates: start: 20201127, end: 20201202
  4. CEFTRIAXONE SODIUM [Suspect]
     Active Substance: CEFTRIAXONE SODIUM
     Indication: Arthritis infective
     Dosage: 1 G, 1X/DAY
     Route: 041
     Dates: start: 20201127, end: 20201218
  5. AMBISOME [Suspect]
     Active Substance: AMPHOTERICIN B
     Indication: Fungal infection
     Dosage: 3 MG/KG, 1X/DAY
     Route: 041
     Dates: start: 20201123, end: 20201218
  6. METRONIDAZOLE [Suspect]
     Active Substance: METRONIDAZOLE
     Indication: Arthritis infective
     Dosage: 1500 MG, 1X/DAY
     Route: 041
     Dates: start: 20201029, end: 20201214

REACTIONS (1)
  - Cholestasis [Recovering/Resolving]

NARRATIVE: CASE EVENT DATE: 20201202
